FAERS Safety Report 8487136-3 (Version None)
Quarter: 2012Q3

REPORT INFORMATION
  Report Type: 
  Country: None (occurrence: None)
  Receive Date: 20120704
  Receipt Date: 20120309
  Transmission Date: 20120928
  Serious: Yes (Other)
  Sender: FDA-Public Use
  Company Number: PHHY2012PH056327

PATIENT
  Sex: Female

DRUGS (1)
  1. ZOLEDRONOC ACID [Suspect]
     Indication: OSTEOPOROSIS
     Dosage: 5 MG (5MG/100ML), UNK
     Route: 042
     Dates: start: 20120309

REACTIONS (7)
  - UNRESPONSIVE TO STIMULI [None]
  - BLOOD PRESSURE DECREASED [None]
  - DIZZINESS [None]
  - VOMITING [None]
  - HYPOGLYCAEMIA [None]
  - ASTHENIA [None]
  - NAUSEA [None]
